FAERS Safety Report 19657043 (Version 1)
Quarter: 2021Q3

REPORT INFORMATION
  Report Type: Spontaneous
  Country: US (occurrence: US)
  Receive Date: 20210804
  Receipt Date: 20210804
  Transmission Date: 20211014
  Serious: No
  Sender: FDA-Public Use
  Company Number: US-AMGEN-USASP2021117727

PATIENT
  Age: 74 Year
  Sex: Male

DRUGS (1)
  1. REPATHA [Suspect]
     Active Substance: EVOLOCUMAB
     Indication: BLOOD CHOLESTEROL ABNORMAL
     Dosage: 420 MILLIGRAM, QMO
     Route: 065
     Dates: start: 2020

REACTIONS (4)
  - Wrong technique in product usage process [Unknown]
  - Incorrect disposal of product [Unknown]
  - Dysarthria [Unknown]
  - Aphasia [Unknown]

NARRATIVE: CASE EVENT DATE: 20210728
